FAERS Safety Report 7745827-3 (Version None)
Quarter: 2011Q3

REPORT INFORMATION
  Report Type: 
  Country: None (occurrence: None)
  Receive Date: 20110913
  Receipt Date: 20110902
  Transmission Date: 20111222
  Serious: Yes (Other)
  Sender: FDA-Public Use
  Company Number: NL-JNJFOC-20110813064

PATIENT
  Sex: Male

DRUGS (10)
  1. REMICADE [Suspect]
     Dosage: INDUCTION DOSE     WEEK 0, 2 AND 6
     Route: 042
     Dates: start: 20110512
  2. METFORMIN HCL [Concomitant]
  3. REMICADE [Suspect]
     Dosage: INDUCTION DOSE     WEEK 0, 2 AND 6
     Route: 042
     Dates: start: 20110512
  4. MELOXICAM [Concomitant]
  5. SIMVASTATIN [Concomitant]
  6. REMICADE [Suspect]
     Indication: CROHN'S DISEASE
     Route: 042
  7. REMICADE [Suspect]
     Indication: FISTULA
     Route: 042
  8. MERCAPTOPURINE [Concomitant]
  9. TOLBUTAMIDE [Concomitant]
  10. PANTAZOL [Concomitant]

REACTIONS (1)
  - MYCOSIS FUNGOIDES [None]
